FAERS Safety Report 22062073 (Version 3)
Quarter: 2023Q1

REPORT INFORMATION
  Report Type: Spontaneous
  Country: US (occurrence: US)
  Receive Date: 20230304
  Receipt Date: 20230317
  Transmission Date: 20230418
  Serious: Yes (Life-Threatening, Hospitalization, Other)
  Sender: FDA-Public Use
  Company Number: US-UNITED THERAPEUTICS-UNT-2023-004695

PATIENT
  Age: 69 Year
  Sex: Female
  Weight: 37.642 kg

DRUGS (8)
  1. REMODULIN [Suspect]
     Active Substance: TREPROSTINIL
     Indication: Pulmonary arterial hypertension
     Dosage: 0.025 ?G/KG, CONTINUING (PRE-FILLED WITH 2.4 ML PER CASSETTE PUMP RATE OF 24 MCL/HR))
     Route: 058
  2. REMODULIN [Suspect]
     Active Substance: TREPROSTINIL
     Dosage: 0.026 ?G/KG, (PRE-FILLED WITH 2.4ML PER CASSETTE AT PUMP RATE 25 MCL/HOUR) CONTINUING
     Route: 058
  3. REMODULIN [Suspect]
     Active Substance: TREPROSTINIL
     Dosage: 0.028 ?G/KG (PHARMACY PRE-FILLED WITH 2.6 ML PER CASSETTE; PUMP RATE OF 26 MCL/HOUR), CONTINUING
     Route: 058
  4. REMODULIN [Suspect]
     Active Substance: TREPROSTINIL
     Dosage: 0.027 ?G/KG (PHARMACY PRE-FILLED WITH 2.6 ML PER CASSETTE; AT A PUMP RATE OF 27 MCL/HOUR), CONTINUIN
     Route: 058
  5. REMODULIN [Suspect]
     Active Substance: TREPROSTINIL
     Dosage: 0.029 ?G/KG, CONTINUING (PRE-FILLED WITH 2.6 ML PER CASSETTE AND RATE OF 27 MCL PER HOUR)
     Route: 058
  6. REMODULIN [Suspect]
     Active Substance: TREPROSTINIL
     Dosage: UNK, CONTINUING
     Route: 058
     Dates: start: 20221207
  7. SILDENAFIL [Concomitant]
     Active Substance: SILDENAFIL
     Indication: Product used for unknown indication
     Dosage: UNK
     Route: 065
  8. OPSUMIT [Concomitant]
     Active Substance: MACITENTAN
     Indication: Product used for unknown indication
     Dosage: UNK
     Route: 065

REACTIONS (11)
  - Acute respiratory failure [Unknown]
  - Pulmonary hypertension [Unknown]
  - Oxygen saturation decreased [Unknown]
  - Dyspnoea [Unknown]
  - Device failure [Not Recovered/Not Resolved]
  - Device wireless communication issue [Not Recovered/Not Resolved]
  - Device wireless communication issue [Not Recovered/Not Resolved]
  - Device malfunction [Not Recovered/Not Resolved]
  - Device failure [Not Recovered/Not Resolved]
  - Dyspnoea exertional [Unknown]
  - Asthenia [Recovering/Resolving]

NARRATIVE: CASE EVENT DATE: 20230301
